FAERS Safety Report 10990716 (Version 1)
Quarter: 2015Q1

REPORT INFORMATION
  Report Type: Spontaneous
  Country: US (occurrence: None)
  Receive Date: 20150326
  Receipt Date: 20150326
  Transmission Date: 20150721
  Serious: No
  Sender: FDA-Public Use
  Company Number: 1000073588

PATIENT
  Age: 36 Year
  Sex: Male

DRUGS (4)
  1. BENEFIBER (DEXTRIN) [Concomitant]
  2. LINZESS [Suspect]
     Active Substance: LINACLOTIDE
  3. METAMUCIL (PLANTAGO OVATA) [Concomitant]
  4. MIRALAX (MACROGOL) [Concomitant]

REACTIONS (1)
  - Unevaluable event [None]
